FAERS Safety Report 7051890-8 (Version None)
Quarter: 2010Q4

REPORT INFORMATION
  Report Type: 
  Country: None (occurrence: None)
  Receive Date: 20101019
  Receipt Date: 20101014
  Transmission Date: 20110411
  Serious: Yes (Hospitalization, Other)
  Sender: FDA-Public Use
  Company Number: BR-ABBOTT-09P-020-0606771-00

PATIENT
  Sex: Female
  Weight: 65 kg

DRUGS (27)
  1. HUMIRA [Suspect]
     Indication: RHEUMATOID ARTHRITIS
     Route: 058
     Dates: end: 20100801
  2. LIPITOR [Concomitant]
     Indication: PRODUCT USED FOR UNKNOWN INDICATION
     Route: 048
  3. FORASEQ [Concomitant]
     Indication: LUNG DISORDER
     Route: 048
  4. SPIRIVA [Concomitant]
     Indication: LUNG DISORDER
     Route: 048
  5. NATRILIX [Concomitant]
     Indication: BLOOD PRESSURE MANAGEMENT
     Route: 048
  6. LASIX [Concomitant]
     Indication: HYPERTENSION
     Route: 048
  7. PROLOPA [Concomitant]
     Indication: MINERAL SUPPLEMENTATION
     Dosage: 200 MG/50 MG
     Route: 048
  8. CALCORT [Concomitant]
     Indication: MINERAL SUPPLEMENTATION
     Route: 048
  9. GARDENAL [Concomitant]
     Indication: SEDATIVE THERAPY
     Route: 048
  10. CELEBRA [Concomitant]
     Indication: PRODUCT USED FOR UNKNOWN INDICATION
     Route: 048
  11. GABAPENTINE [Concomitant]
     Indication: PAIN
     Route: 048
  12. SANDOZ [Concomitant]
     Indication: BLOOD CALCIUM
     Route: 048
  13. FLUIMUCIL D [Concomitant]
     Indication: LUNG DISORDER
     Route: 048
  14. OMEZOLON [Concomitant]
     Indication: GASTRIC DISORDER
     Route: 048
  15. DINAFLEX [Concomitant]
     Indication: BONE DISORDER
     Route: 048
  16. FOLIC ACID [Concomitant]
     Indication: BONE DISORDER
     Route: 048
  17. BONALEN [Concomitant]
     Indication: BONE DISORDER
     Route: 048
  18. OMEPRAZOLE [Concomitant]
     Indication: GASTRIC DISORDER
     Route: 048
  19. FEBRALAT [Concomitant]
     Indication: CARDIOVASCULAR DISORDER
     Route: 048
  20. PROLOPA [Concomitant]
     Indication: PARKINSON'S DISEASE
     Dosage: 200/50MG
     Route: 048
  21. LIPITOR [Concomitant]
     Indication: BLOOD CHOLESTEROL ABNORMAL
     Route: 048
  22. ALENDRONATE SODIUM [Concomitant]
     Indication: RHEUMATOID ARTHRITIS
     Route: 048
  23. CALCIUM [Concomitant]
     Indication: BONE DISORDER
     Route: 048
  24. FOLIC ACID [Concomitant]
     Indication: ANAEMIA
  25. GLUCOSAMIN SULFATE [Concomitant]
     Indication: RHEUMATOID ARTHRITIS
     Route: 048
  26. GARDENAL [Concomitant]
     Indication: CONVULSION
     Route: 048
  27. DIOSMIN [Concomitant]
     Indication: THROMBOSIS
     Dosage: 450/50MG
     Route: 048

REACTIONS (9)
  - ANAEMIA [None]
  - ASTHMA [None]
  - DECREASED APPETITE [None]
  - MALNUTRITION [None]
  - OSTEOPOROSIS [None]
  - PAIN IN EXTREMITY [None]
  - PNEUMONIA [None]
  - THROMBOSIS [None]
  - URINARY TRACT INFECTION [None]
